FAERS Safety Report 10769510 (Version 1)
Quarter: 2015Q1

REPORT INFORMATION
  Report Type: Spontaneous
  Country: FR (occurrence: FR)
  Receive Date: 20150206
  Receipt Date: 20150206
  Transmission Date: 20150721
  Serious: Yes (Hospitalization)
  Sender: FDA-Public Use
  Company Number: FR-SA-2015SA012165

PATIENT
  Age: 29 Year
  Sex: Male

DRUGS (2)
  1. LANTUS [Suspect]
     Active Substance: INSULIN GLARGINE
     Dosage: 1 INJECTION, 400 IU
     Route: 058
     Dates: start: 20141215, end: 20141215
  2. LANTUS [Suspect]
     Active Substance: INSULIN GLARGINE
     Route: 065

REACTIONS (6)
  - Gamma-glutamyltransferase increased [None]
  - Somnolence [Recovering/Resolving]
  - Alanine aminotransferase increased [None]
  - Hypoglycaemia [Recovered/Resolved]
  - Aspartate aminotransferase increased [None]
  - Incorrect dose administered [None]

NARRATIVE: CASE EVENT DATE: 20141215
